FAERS Safety Report 5140935-8 (Version None)
Quarter: 2006Q4

REPORT INFORMATION
  Report Type: 
  Country: None (occurrence: None)
  Receive Date: 20061025
  Receipt Date: 20061025
  Transmission Date: 20070319
  Serious: Yes (Hospitalization)
  Sender: FDA-Public Use
  Company Number: None

PATIENT
  Age: 64 Year
  Sex: Male
  Weight: 120.2032 kg

DRUGS (3)
  1. ENALAPRIL MALEATE [Suspect]
     Dosage: 5MG  PO  BID
     Route: 048
     Dates: start: 20060907, end: 20060909
  2. METOPROLOL TARTRATE [Suspect]
     Dosage: 25MG  PO  BID
     Route: 048
     Dates: start: 20060907, end: 20060909
  3. ISOSORBIDE MONONITRATE [Suspect]
     Dosage: 30MG  S.R. DAILY
     Dates: start: 20060907, end: 20060909

REACTIONS (3)
  - CHEST PAIN [None]
  - DIZZINESS [None]
  - HYPOTENSION [None]
